FAERS Safety Report 9785745 (Version 1)
Quarter: 2013Q4

REPORT INFORMATION
  Report Type: Spontaneous
  Country: GB (occurrence: GB)
  Receive Date: 20131227
  Receipt Date: 20131227
  Transmission Date: 20140711
  Serious: Yes (Other)
  Sender: FDA-Public Use
  Company Number: GB-PFIZER INC-2013364742

PATIENT
  Age: 83 Year
  Sex: Female
  Weight: 83 kg

DRUGS (6)
  1. DEXAMETHASONE SODIUM PHOSPHATE [Suspect]
     Indication: GENERAL ANAESTHESIA
     Dosage: 8 MG
     Route: 042
     Dates: start: 20130325
  2. PROPOFOL [Suspect]
     Indication: GENERAL ANAESTHESIA
     Dosage: 70 MG
     Route: 042
     Dates: start: 20130325
  3. ROCURONIUM [Suspect]
     Indication: GENERAL ANAESTHESIA
     Dosage: 50 MG
     Route: 042
     Dates: start: 20130325
  4. REMIFENTANIL [Suspect]
     Indication: GENERAL ANAESTHESIA
     Dosage: UNK
     Dates: start: 20130325
  5. TARGOCID [Suspect]
     Indication: ANTIBIOTIC PROPHYLAXIS
     Dosage: 150 MG
     Route: 042
     Dates: start: 20130325
  6. MIDAZOLAM [Suspect]
     Indication: GENERAL ANAESTHESIA
     Dosage: 2 MG
     Route: 042
     Dates: start: 20130325

REACTIONS (1)
  - Procedural hypotension [Recovered/Resolved]
